FAERS Safety Report 7744157-3 (Version None)
Quarter: 2011Q3

REPORT INFORMATION
  Report Type: 
  Country: None (occurrence: None)
  Receive Date: 20110912
  Receipt Date: 20110909
  Transmission Date: 20111222
  Serious: No
  Sender: FDA-Public Use
  Company Number: US-PFIZER INC-2011213030

PATIENT
  Sex: Female
  Weight: 43.084 kg

DRUGS (3)
  1. VICODIN [Concomitant]
     Indication: ARTHRITIS
     Dosage: 0.5 MG, UNK
  2. LYRICA [Suspect]
     Indication: RHEUMATOID ARTHRITIS
     Dosage: 50 MG,DAILY
     Route: 048
  3. VERAPAMIL [Concomitant]
     Indication: HYPERTENSION
     Dosage: 240 MG, 2X/DAY

REACTIONS (3)
  - HEADACHE [None]
  - MALAISE [None]
  - NAUSEA [None]
